FAERS Safety Report 24260399 (Version 11)
Quarter: 2025Q3

REPORT INFORMATION
  Report Type: Report from Study
  Country: US (occurrence: US)
  Receive Date: 20240828
  Receipt Date: 20250909
  Transmission Date: 20251020
  Serious: No
  Sender: SUNOVION
  Company Number: US-SUMITOMO PHARMA SWITZERLAND GMBH-2024SPA000570

PATIENT
  Age: 78 Year
  Sex: Male

DRUGS (2)
  1. ORGOVYX [Suspect]
     Active Substance: RELUGOLIX
     Indication: Prostate cancer
     Dosage: 120 MG, QD
     Route: 048
  2. XTANDI [Concomitant]
     Active Substance: ENZALUTAMIDE
     Indication: Product used for unknown indication

REACTIONS (19)
  - Foot fracture [Unknown]
  - Confusional state [Unknown]
  - Memory impairment [Unknown]
  - Testicular atrophy [Unknown]
  - Blood pressure fluctuation [Unknown]
  - Affective disorder [Unknown]
  - Alopecia [Unknown]
  - Muscle spasms [Unknown]
  - Urinary incontinence [Recovered/Resolved]
  - Fungal infection [Unknown]
  - Dizziness [Unknown]
  - Hyperhidrosis [Unknown]
  - Fatigue [Unknown]
  - Back pain [Unknown]
  - Hot flush [Unknown]
  - Myalgia [Unknown]
  - Weight increased [Unknown]
  - Headache [Unknown]
  - Incorrect dose administered [Recovered/Resolved]
